FAERS Safety Report 11831228 (Version 4)
Quarter: 2020Q4

REPORT INFORMATION
  Report Type: Report from Study
  Country: FR (occurrence: FR)
  Receive Date: 20151214
  Receipt Date: 20201228
  Transmission Date: 20210113
  Serious: Yes (Hospitalization)
  Sender: FDA-Public Use
  Company Number: PHHO2015FR016304

PATIENT
  Age: 13 Year
  Sex: Male
  Weight: 55 kg

DRUGS (11)
  1. DABRAFENIB [Suspect]
     Active Substance: DABRAFENIB
     Dosage: 100 MG, BID
     Route: 048
     Dates: start: 20160224, end: 20160320
  2. DABRAFENIB [Suspect]
     Active Substance: DABRAFENIB
     Dosage: 200 MG, BID
     Route: 048
     Dates: start: 20150701, end: 20150920
  3. DOLIPRANE [Concomitant]
     Active Substance: ACETAMINOPHEN
     Indication: HEADACHE
     Dosage: 500 MG, PRN
     Route: 048
     Dates: start: 20150518
  4. ZOPHREN [Concomitant]
     Active Substance: ONDANSETRON
     Indication: PROPHYLAXIS OF NAUSEA AND VOMITING
     Dosage: 8 MG, PRN
     Route: 048
     Dates: start: 20160212, end: 20160303
  5. MORPHINE [Concomitant]
     Active Substance: MORPHINE
     Indication: PAIN
     Dosage: 8 DRP, PRN
     Route: 048
     Dates: start: 20160224
  6. DABRAFENIB [Suspect]
     Active Substance: DABRAFENIB
     Dosage: 127.5 MG, BID
     Route: 048
     Dates: start: 20160321, end: 20160411
  7. DABRAFENIB [Suspect]
     Active Substance: DABRAFENIB
     Dosage: 150 MG, BID
     Route: 048
     Dates: start: 20150928, end: 20160215
  8. DABRAFENIB [Suspect]
     Active Substance: DABRAFENIB
     Dosage: 50 MG, BID
     Route: 048
     Dates: start: 20160219, end: 20160223
  9. DABRAFENIB [Suspect]
     Active Substance: DABRAFENIB
     Indication: NEOPLASM
     Dosage: 4.5 MG/KG, QD
     Route: 048
     Dates: start: 20150515, end: 20150623
  10. DABRAFENIB [Suspect]
     Active Substance: DABRAFENIB
     Dosage: 2.25 MG/KG
     Route: 048
  11. SKENAN [Concomitant]
     Active Substance: MORPHINE SULFATE
     Indication: PAIN
     Dosage: 20 MG, AC
     Route: 048
     Dates: start: 20160224, end: 20160317

REACTIONS (7)
  - Metastases to meninges [Recovered/Resolved]
  - Meningeal disorder [Recovered/Resolved]
  - Meningeal disorder [Recovered/Resolved]
  - Metastases to meninges [Recovered/Resolved]
  - Meningeal disorder [Recovered/Resolved]
  - Meningeal disorder [Recovered/Resolved]
  - Vomiting [Recovered/Resolved]

NARRATIVE: CASE EVENT DATE: 20150703
